FAERS Safety Report 7830501-5 (Version None)
Quarter: 2011Q4

REPORT INFORMATION
  Report Type: 
  Country: None (occurrence: None)
  Receive Date: 20111021
  Receipt Date: 20111012
  Transmission Date: 20120403
  Serious: Yes (Hospitalization)
  Sender: FDA-Public Use
  Company Number: US-ASTRAZENECA-2011SE61463

PATIENT
  Sex: Male

DRUGS (1)
  1. VANDETANIB [Suspect]
     Indication: GLIOBLASTOMA MULTIFORME
     Route: 048
     Dates: start: 20110727, end: 20110920

REACTIONS (2)
  - DEHYDRATION [None]
  - ABDOMINAL PAIN UPPER [None]
